FAERS Safety Report 9312900 (Version 4)
Quarter: 2013Q3

REPORT INFORMATION
  Report Type: Report from Study
  Country: IE (occurrence: IE)
  Receive Date: 20130528
  Receipt Date: 20130821
  Transmission Date: 20140515
  Serious: Yes (Other)
  Sender: FDA-Public Use
  Company Number: IE-ALEXION-A201301152

PATIENT
  Age: 37 Year
  Sex: Female

DRUGS (7)
  1. SOLIRIS [Suspect]
     Indication: PAROXYSMAL NOCTURNAL HAEMOGLOBINURIA
     Dosage: UNK
     Route: 042
  2. SOLIRIS [Suspect]
     Dosage: 1200 MG, Q2W
     Route: 042
  3. CALVEPEN [Concomitant]
     Dosage: 66 MG, BID
  4. FOLIC ACID [Concomitant]
     Dosage: 5 MG, UNK
  5. NEXIUM [Concomitant]
     Dosage: 20 MG, UNK
     Dates: start: 201205
  6. NEXIUM [Concomitant]
     Dosage: 40 MG, UNK
     Dates: start: 20130525
  7. EXJADE [Concomitant]
     Dosage: UNK

REACTIONS (1)
  - Foot fracture [Recovered/Resolved]
